FAERS Safety Report 7280437-6 (Version None)
Quarter: 2011Q1

REPORT INFORMATION
  Report Type: 
  Country: None (occurrence: None)
  Receive Date: 20110208
  Receipt Date: 20110202
  Transmission Date: 20110831
  Serious: Yes (Hospitalization)
  Sender: FDA-Public Use
  Company Number: FR-SANOFI-AVENTIS-2011SA007128

PATIENT
  Sex: Male

DRUGS (4)
  1. EMTRICITABINE/TENOFOVIR DISOPROXIL FUMARATE [Concomitant]
     Indication: HIV INFECTION
     Route: 048
  2. KETEK [Suspect]
     Route: 048
  3. RITONAVIR [Concomitant]
     Indication: HIV INFECTION
     Route: 048
  4. ATAZANAVIR [Concomitant]
     Indication: HIV INFECTION
     Route: 048

REACTIONS (6)
  - THROMBOCYTOPENIA [None]
  - FATIGUE [None]
  - DRUG INTERACTION [None]
  - NEUTROPENIA [None]
  - ANAEMIA [None]
  - HAEMOLYSIS [None]
